FAERS Safety Report 12651662 (Version 1)
Quarter: 2016Q3

REPORT INFORMATION
  Report Type: Spontaneous
  Country: BR (occurrence: BR)
  Receive Date: 20160815
  Receipt Date: 20160815
  Transmission Date: 20161109
  Serious: Yes (Other)
  Sender: FDA-Public Use
  Company Number: BR-PFIZER INC-2016381298

PATIENT
  Age: 91 Year
  Sex: Female
  Weight: 51.65 kg

DRUGS (5)
  1. DOXORUBICIN HCL [Suspect]
     Active Substance: DOXORUBICIN HYDROCHLORIDE
     Dosage: UNK
  2. CYCLOPHOSPHAMIDE. [Suspect]
     Active Substance: CYCLOPHOSPHAMIDE
  3. VINCRISTINE [Suspect]
     Active Substance: VINCRISTINE
  4. RITUXIMAB [Suspect]
     Active Substance: RITUXIMAB
  5. ETOPOSIDE. [Suspect]
     Active Substance: ETOPOSIDE

REACTIONS (3)
  - Renal impairment [Not Recovered/Not Resolved]
  - Neutropenia [Recovered/Resolved]
  - Mucosal inflammation [Recovered/Resolved]

NARRATIVE: CASE EVENT DATE: 20160801
